FAERS Safety Report 10346068 (Version 2)
Quarter: 2014Q3

REPORT INFORMATION
  Report Type: Not Available
  Country: CN (occurrence: CN)
  Receive Date: 20140728
  Receipt Date: 20140728
  Transmission Date: 20150326
  Serious: Yes (Other)
  Sender: FDA-Public Use
  Company Number: CN-MUNDIPHARMA DS AND PHARMACOVIGILANCE-GBR-2014-0019510

PATIENT
  Age: 58 Year
  Sex: Male
  Weight: 62 kg

DRUGS (2)
  1. MS CONTIN [Suspect]
     Active Substance: MORPHINE SULFATE
     Dosage: 30 MG, TID
     Route: 048
     Dates: start: 20140129
  2. MS CONTIN [Suspect]
     Active Substance: MORPHINE SULFATE
     Indication: PAIN
     Dosage: 60 MG, BID
     Route: 048
     Dates: start: 20140215, end: 20140228

REACTIONS (3)
  - Hallucination [Recovering/Resolving]
  - Delirium [Recovering/Resolving]
  - Illusion [Recovering/Resolving]

NARRATIVE: CASE EVENT DATE: 20140215
